FAERS Safety Report 7478573-4 (Version None)
Quarter: 2011Q2

REPORT INFORMATION
  Report Type: 
  Country: None (occurrence: None)
  Receive Date: 20110504
  Receipt Date: 20100408
  Transmission Date: 20111010
  Serious: Yes (Hospitalization, Other)
  Sender: FDA-Public Use
  Company Number: 2010SP020510

PATIENT
  Age: 28 Year
  Sex: Female
  Weight: 102.0593 kg

DRUGS (1)
  1. NUVARING [Suspect]
     Indication: CONTRACEPTION
     Dosage: HP
     Dates: start: 20071101, end: 20080401

REACTIONS (4)
  - MULTIPLE INJURIES [None]
  - DEEP VEIN THROMBOSIS [None]
  - COAGULOPATHY [None]
  - PULMONARY EMBOLISM [None]
